FAERS Safety Report 13630173 (Version 2)
Quarter: 2017Q2

REPORT INFORMATION
  Report Type: Spontaneous
  Country: FR (occurrence: FR)
  Receive Date: 20170608
  Receipt Date: 20170620
  Transmission Date: 20170830
  Serious: Yes (Other)
  Sender: FDA-Public Use
  Company Number: FR-BAYER-2017-109983

PATIENT
  Age: 34 Year
  Sex: Female

DRUGS (1)
  1. MIRENA [Suspect]
     Active Substance: LEVONORGESTREL
     Dosage: 20 MCG/24HR, CONT
     Route: 015
     Dates: start: 20170202, end: 20170524

REACTIONS (6)
  - Urticaria [Unknown]
  - Alopecia [Unknown]
  - Depression [Unknown]
  - Irritability [Unknown]
  - Memory impairment [Unknown]
  - Anxiety [Unknown]

NARRATIVE: CASE EVENT DATE: 201702
